FAERS Safety Report 13430195 (Version 4)
Quarter: 2018Q1

REPORT INFORMATION
  Report Type: Spontaneous
  Country: US (occurrence: US)
  Receive Date: 20170412
  Receipt Date: 20180221
  Transmission Date: 20180508
  Serious: Yes (Hospitalization, Other)
  Sender: FDA-Public Use
  Company Number: PHEH2017US010629

PATIENT
  Age: 17 Year
  Sex: Male

DRUGS (1)
  1. PROMACTA [Suspect]
     Active Substance: ELTROMBOPAG OLAMINE
     Indication: IMMUNE THROMBOCYTOPENIC PURPURA
     Dosage: 75 MG, QD
     Route: 048
     Dates: start: 20170213, end: 20171224

REACTIONS (9)
  - Disease progression [Unknown]
  - Glioblastoma [Unknown]
  - Drug ineffective [Unknown]
  - Inappropriate antidiuretic hormone secretion [Unknown]
  - Cerebral haemorrhage [Recovered/Resolved]
  - Malnutrition [Unknown]
  - Constipation [Unknown]
  - Fall [Unknown]
  - Hyponatraemia [Unknown]

NARRATIVE: CASE EVENT DATE: 20170406
